FAERS Safety Report 11787104 (Version 1)
Quarter: 2015Q4

REPORT INFORMATION
  Report Type: Spontaneous
  Country: SE (occurrence: SE)
  Receive Date: 20151130
  Receipt Date: 20151130
  Transmission Date: 20160305
  Serious: Yes (Other)
  Sender: FDA-Public Use
  Company Number: SE-GLAXOSMITHKLINE-SE2015GSK168025

PATIENT
  Age: 63 Year
  Sex: Female

DRUGS (1)
  1. NEOTIGASON [Suspect]
     Active Substance: ACITRETIN
     Indication: PSORIASIS
     Dosage: UNK
     Route: 048
     Dates: start: 201506, end: 20150811

REACTIONS (10)
  - Aphonia [Unknown]
  - Pyrexia [Unknown]
  - Arthralgia [Unknown]
  - Nausea [Unknown]
  - Diarrhoea [Unknown]
  - Nail discolouration [Unknown]
  - C-reactive protein increased [Unknown]
  - Abdominal pain [Unknown]
  - Headache [Unknown]
  - Acne [Unknown]

NARRATIVE: CASE EVENT DATE: 201508
